FAERS Safety Report 5007264-4 (Version None)
Quarter: 2006Q2

REPORT INFORMATION
  Report Type: 
  Country: None (occurrence: None)
  Receive Date: 20060517
  Receipt Date: 20060504
  Transmission Date: 20061013
  Serious: Yes (Hospitalization)
  Sender: FDA-Public Use
  Company Number: US016653

PATIENT
  Age: 42 Year
  Sex: Female

DRUGS (3)
  1. PROVIGIL [Suspect]
     Indication: SOMNOLENCE
     Dosage: 100 MG QD ORAL
     Route: 048
     Dates: start: 20051208, end: 20051222
  2. RISPERDAL [Suspect]
     Indication: SCHIZOAFFECTIVE DISORDER
     Dates: start: 20051001, end: 20051226
  3. LEXAPRO [Suspect]
     Indication: SCHIZOAFFECTIVE DISORDER
     Dates: start: 20051001, end: 20051226

REACTIONS (5)
  - ACNE [None]
  - DRUG INEFFECTIVE [None]
  - FEELING ABNORMAL [None]
  - STEVENS-JOHNSON SYNDROME [None]
  - TOXIC EPIDERMAL NECROLYSIS [None]
